FAERS Safety Report 5818774-1 (Version None)
Quarter: 2008Q3

REPORT INFORMATION
  Report Type: 
  Country: None (occurrence: None)
  Receive Date: 20080721
  Receipt Date: 20080721
  Transmission Date: 20090109
  Serious: Yes (Other)
  Sender: FDA-Public Use
  Company Number: None

PATIENT
  Age: 41 Year
  Sex: Female
  Weight: 64.8644 kg

DRUGS (4)
  1. SERTRALINE [Suspect]
     Indication: DEPRESSION
     Dosage: 50 MG ONE DAILY PO
     Route: 048
     Dates: start: 20080605, end: 20080705
  2. SERTRALINE [Suspect]
     Indication: PANIC ATTACK
     Dosage: 50 MG ONE DAILY PO
     Route: 048
     Dates: start: 20080605, end: 20080705
  3. ZOLOFT [Concomitant]
  4. SERTRALINE [Concomitant]

REACTIONS (9)
  - BLOOD PRESSURE DECREASED [None]
  - CHILLS [None]
  - DIZZINESS [None]
  - HEART RATE INCREASED [None]
  - HYPERHIDROSIS [None]
  - NERVOUS SYSTEM DISORDER [None]
  - SLEEP DISORDER [None]
  - VISUAL IMPAIRMENT [None]
  - VOMITING [None]
